FAERS Safety Report 8809843 (Version 2)
Quarter: 2012Q4

REPORT INFORMATION
  Report Type: 
  Country: US (occurrence: US)
  Receive Date: 20120926
  Receipt Date: 20121025
  Transmission Date: 20130627
  Serious: Yes (Other)
  Sender: FDA-Public Use
  Company Number: US-ELI_LILLY_AND_COMPANY-US201209004824

PATIENT
  Age: 30 Year
  Sex: Female

DRUGS (15)
  1. FORTEO [Suspect]
     Indication: STEROID THERAPY
     Dosage: UNK, qd
     Route: 058
  2. REGLAN [Concomitant]
     Dosage: 5 mg, qd
  3. OMEPRAZOLE [Concomitant]
     Dosage: 20 mg, bid
  4. LISINOPRIL [Concomitant]
     Dosage: 40 mg, bid
  5. PREDNISONE [Concomitant]
     Indication: VASCULITIS
     Dosage: 7.5 mg, qd
  6. METFORMIN [Concomitant]
     Dosage: 500 mg, bid
  7. PRAVASTATIN [Concomitant]
     Dosage: 40 mg, each evening
  8. CALTRATE WITH VITAMIN D [Concomitant]
     Dosage: 600 mg, bid
  9. VITAMIN D [Concomitant]
     Dosage: 1000 u, qd
  10. NORCO [Concomitant]
     Dosage: UNK, qid
  11. MULTIVITAMIN [Concomitant]
  12. LOSARTAN [Concomitant]
     Dosage: 25 mg, qd
  13. IMURAN                             /00001501/ [Concomitant]
     Indication: VASCULITIS
     Dosage: 50 mg, qd
  14. PROZAC [Concomitant]
     Dosage: 20 mg, qd
  15. CYMBALTA [Concomitant]

REACTIONS (1)
  - Suicidal ideation [Recovered/Resolved]
